FAERS Safety Report 6523378-1 (Version None)
Quarter: 2009Q4

REPORT INFORMATION
  Report Type: 
  Country: None (occurrence: None)
  Receive Date: 20091231
  Receipt Date: 20091222
  Transmission Date: 20100525
  Serious: Yes (Hospitalization)
  Sender: FDA-Public Use
  Company Number: US-BRISTOL-MYERS SQUIBB COMPANY-14867477

PATIENT
  Age: 16 Year
  Sex: Female
  Weight: 57 kg

DRUGS (4)
  1. ABILIFY [Suspect]
     Indication: BIPOLAR DISORDER
     Route: 048
     Dates: start: 20091023, end: 20091101
  2. ABILIFY [Suspect]
     Indication: SCHIZOPHRENIA
     Route: 048
     Dates: start: 20091023, end: 20091101
  3. ABILIFY [Suspect]
     Indication: IMPULSE-CONTROL DISORDER
     Route: 048
     Dates: start: 20091023, end: 20091101
  4. GEODON [Concomitant]
     Dosage: 2WEEKS
     Dates: start: 20090728, end: 20091017

REACTIONS (3)
  - PSYCHOTIC DISORDER [None]
  - RESTLESSNESS [None]
  - THINKING ABNORMAL [None]
